FAERS Safety Report 8207824-3 (Version None)
Quarter: 2012Q1

REPORT INFORMATION
  Report Type: 
  Country: None (occurrence: None)
  Receive Date: 20120314
  Receipt Date: 20120229
  Transmission Date: 20120608
  Serious: Yes (Hospitalization)
  Sender: FDA-Public Use
  Company Number: AU-COVIDIEN/TYCO HEALTHCARE/MALLINCKRODT-T201201016

PATIENT
  Age: 75 Year
  Sex: Female

DRUGS (2)
  1. MIRTAZAPINE [Suspect]
     Indication: PRODUCT USED FOR UNKNOWN INDICATION
  2. EXALGO [Suspect]
     Indication: BACK PAIN
     Dosage: 8 MG, QD
     Route: 048
     Dates: start: 20120222, end: 20120228

REACTIONS (3)
  - DRUG INTERACTION [None]
  - NAUSEA [None]
  - DYSTONIA [None]
